FAERS Safety Report 9238657 (Version 1)
Quarter: 2013Q1

REPORT INFORMATION
  Report Type: Spontaneous
  Country: US (occurrence: None)
  Receive Date: 20121106
  Receipt Date: 20121106
  Transmission Date: 20140127
  Serious: No
  Sender: FDA-Public Use
  Company Number: 1000038193

PATIENT
  Age: 64 Year
  Sex: Male

DRUGS (11)
  1. DALIRESP [Suspect]
     Indication: CHRONIC OBSTRUCTIVE PULMONARY DISEASE
     Route: 048
     Dates: start: 20120822, end: 20120825
  2. LISINOPRIL (LISINOPRIL) (LISINOPRIL) [Concomitant]
  3. HYDROCHLOROTHIAZIDE (HYDROCHLOROTHIAZIDE) (HYDROCHLOROTHIAZIDE) [Concomitant]
  4. CATAPRES (CLONIDINE) (CLONIDINE) [Concomitant]
  5. SIMVASTATIN (SIMVASTATIN) (SIMVASTATIN) [Concomitant]
  6. ULTRAM (TRAMADOL HYDROCHLORIDE) (TRAMADOL HYDROCHLORDIE) [Concomitant]
  7. VIT D (ERGOCALCIFEROL) ( ERGOCALCIFEROL) [Concomitant]
  8. MICRO K  (POTASSIUM CHLORIDE) (POTASSIUM CHLORIDE) [Concomitant]
  9. SPIRIVA (TIOTROPIUM BROMIDE) (TIOTROPIUM BROMIDE) [Concomitant]
  10. SYMBICORT (BUDESONIDE W/FORMOTEROL FUMARATE) (BUDESONIDE W/FORMOTEROL FUMARATE) [Concomitant]
  11. PROAIR HFA (SALBUTAMOL SULFATE) (SALBUTAMOL SULFATE) [Concomitant]

REACTIONS (1)
  - Headache [None]
